FAERS Safety Report 7266518-1 (Version None)
Quarter: 2011Q1

REPORT INFORMATION
  Report Type: 
  Country: None (occurrence: None)
  Receive Date: 20110131
  Receipt Date: 20110128
  Transmission Date: 20110831
  Serious: Yes (Other)
  Sender: FDA-Public Use
  Company Number: FI-PFIZER INC-2011001219

PATIENT
  Age: 46 Year
  Sex: Female

DRUGS (3)
  1. PANACOD [Concomitant]
     Indication: PAIN
     Dosage: 1-2 DAILY
  2. LYRICA [Suspect]
     Indication: SCIATICA
     Dosage: 75 MG, 1X/DAY
     Dates: start: 20101202, end: 20101208
  3. LYRICA [Suspect]
     Indication: NEURALGIA
     Dosage: 75 MG, 2X/DAY
     Dates: start: 20101209, end: 20101222

REACTIONS (10)
  - DRUG INEFFECTIVE [None]
  - PAIN [None]
  - FALL [None]
  - DIZZINESS [None]
  - ABSCESS [None]
  - ANAPHYLACTIC REACTION [None]
  - PRURITUS [None]
  - URTICARIA [None]
  - PARAESTHESIA [None]
  - BACTERIAL INFECTION [None]
